FAERS Safety Report 6595759-1 (Version None)
Quarter: 2010Q1

REPORT INFORMATION
  Report Type: 
  Country: None (occurrence: None)
  Receive Date: 20100223
  Receipt Date: 20100105
  Transmission Date: 20100710
  Serious: Yes (Death)
  Sender: FDA-Public Use
  Company Number: US-TYCO HEALTHCARE/MALLINCKRODT-T201000434

PATIENT
  Age: 70 Year
  Sex: Female

DRUGS (3)
  1. MORPHINE [Suspect]
     Route: 048
  2. TRAMADOL HCL [Suspect]
     Route: 048
  3. DIPHENHYDRAMINE [Suspect]
     Route: 048

REACTIONS (1)
  - DEATH [None]
